FAERS Safety Report 5356320-X (Version None)
Quarter: 2007Q2

REPORT INFORMATION
  Report Type: 
  Country: None (occurrence: None)
  Receive Date: 20070613
  Receipt Date: 20070601
  Transmission Date: 20071010
  Serious: Yes (Hospitalization, Other)
  Sender: FDA-Public Use
  Company Number: FR-PFIZER INC-2007045425

PATIENT
  Age: 82 Year
  Sex: Male

DRUGS (1)
  1. AMLOR [Suspect]
     Indication: HYPERTENSION

REACTIONS (4)
  - FALL [None]
  - PARKINSON'S DISEASE [None]
  - SYNCOPE [None]
  - VERTIGO [None]
